FAERS Safety Report 8579266-2 (Version None)
Quarter: 2012Q3

REPORT INFORMATION
  Report Type: 
  Country: None (occurrence: None)
  Receive Date: 20120731
  Receipt Date: 20120731
  Transmission Date: 20120928
  Serious: Yes (Life-Threatening, Hospitalization)
  Sender: FDA-Public Use
  Company Number: None

PATIENT
  Age: 22 Year
  Sex: Male

DRUGS (1)
  1. SULFAMETHOXAZOLE AND TRIMETHOPRIM [Suspect]
     Indication: ANTIFUNGAL PROPHYLAXIS
     Dosage: 800/160MG DAILY PO
     Route: 048
     Dates: start: 20120613, end: 20120630

REACTIONS (3)
  - PANCREATITIS [None]
  - RHABDOMYOLYSIS [None]
  - RENAL FAILURE ACUTE [None]
